FAERS Safety Report 9067662 (Version 4)
Quarter: 2013Q3

REPORT INFORMATION
  Report Type: Spontaneous
  Country: US (occurrence: US)
  Receive Date: 20130128
  Receipt Date: 20130826
  Transmission Date: 20140515
  Serious: Yes (Other)
  Sender: FDA-Public Use
  Company Number: US-PFIZER INC-2013034396

PATIENT
  Age: 76 Year
  Sex: Female
  Weight: 48.98 kg

DRUGS (8)
  1. LYRICA [Suspect]
     Indication: FIBROMYALGIA
     Dosage: 50 MG, 2X/DAY
     Route: 048
     Dates: start: 200911, end: 201212
  2. LYRICA [Suspect]
     Indication: DIABETIC NEUROPATHY
     Dosage: UNK
     Route: 048
  3. LYRICA [Suspect]
     Dosage: 50 MG, 3X/DAY
     Route: 048
     Dates: end: 201308
  4. XANAX [Concomitant]
     Indication: ANXIETY
     Dosage: UNK
  5. GLIPIZIDE [Concomitant]
     Indication: DIABETES MELLITUS
     Dosage: UNK
  6. NITROGLYCERIN [Concomitant]
     Indication: CHEST PAIN
     Dosage: UNK
  7. CARDIZEM [Concomitant]
     Indication: CARDIAC DISORDER
     Dosage: UNK
  8. VITAMIN D [Concomitant]
     Dosage: UNK

REACTIONS (5)
  - Chronic obstructive pulmonary disease [Unknown]
  - Limb discomfort [Unknown]
  - Arthropathy [Unknown]
  - Local swelling [Recovered/Resolved]
  - Eyelids pruritus [Recovered/Resolved]
